FAERS Safety Report 5699786-8 (Version None)
Quarter: 2008Q2

REPORT INFORMATION
  Report Type: 
  Country: None (occurrence: None)
  Receive Date: 20080408
  Receipt Date: 20080408
  Transmission Date: 20081010
  Serious: Yes (Hospitalization)
  Sender: FDA-Public Use
  Company Number: None

PATIENT
  Sex: Female
  Weight: 107.8 kg

DRUGS (3)
  1. CISPLATIN [Suspect]
     Dosage: 100 MG
  2. DOXORUBICIN HYDROCHLORIDE [Suspect]
     Dosage: 90 MG
  3. TAXOL [Suspect]
     Dosage: 320 MG

REACTIONS (4)
  - ASTHENIA [None]
  - DIARRHOEA [None]
  - FEBRILE NEUTROPENIA [None]
  - FLUID INTAKE REDUCED [None]
